FAERS Safety Report 5409123-1 (Version None)
Quarter: 2007Q3

REPORT INFORMATION
  Report Type: 
  Country: None (occurrence: None)
  Receive Date: 20070808
  Receipt Date: 20070802
  Transmission Date: 20080115
  Serious: Yes (Hospitalization, Other)
  Sender: FDA-Public Use
  Company Number: SE-ALLERGAN-0708432US

PATIENT
  Sex: Female

DRUGS (5)
  1. ALPHAGAN [Suspect]
     Indication: GLAUCOMA
     Dosage: 1 GTT, BID
     Route: 047
     Dates: start: 20070508, end: 20070510
  2. COZAAR [Concomitant]
  3. COSOPT [Concomitant]
  4. WARAN [Concomitant]
  5. CARDIZEM [Concomitant]

REACTIONS (5)
  - BRADYCARDIA [None]
  - HYPERGLYCAEMIA [None]
  - HYPERKALAEMIA [None]
  - HYPOTENSION [None]
  - VISION BLURRED [None]
